FAERS Safety Report 14626271 (Version 1)
Quarter: 2018Q1

REPORT INFORMATION
  Report Type: Spontaneous
  Country: US (occurrence: US)
  Receive Date: 20180312
  Receipt Date: 20180312
  Transmission Date: 20180509
  Serious: No
  Sender: FDA-Public Use
  Company Number: US-INFO-000593

PATIENT
  Age: 41 Year
  Sex: Female

DRUGS (1)
  1. ZOLEDRONIC ACID INJECTION 4 MG (PRE-MIXED BAG) [Suspect]
     Active Substance: ZOLEDRONIC ACID
     Indication: PLASMA CELL MYELOMA
     Route: 042

REACTIONS (2)
  - Administration site extravasation [Recovered/Resolved]
  - Peripheral swelling [Recovered/Resolved]

NARRATIVE: CASE EVENT DATE: 20180212
